FAERS Safety Report 9645367 (Version 1)
Quarter: 2013Q4

REPORT INFORMATION
  Report Type: Spontaneous
  Country: US (occurrence: US)
  Receive Date: 20131025
  Receipt Date: 20131025
  Transmission Date: 20140711
  Serious: Yes (Other)
  Sender: FDA-Public Use
  Company Number: US-ELI_LILLY_AND_COMPANY-US201310006741

PATIENT
  Age: 37 Year
  Sex: Female
  Weight: 65.76 kg

DRUGS (1)
  1. HUMALOG LISPRO [Suspect]
     Indication: PRODUCT USED FOR UNKNOWN INDICATION
     Route: 058

REACTIONS (4)
  - Diabetic ketoacidosis [Unknown]
  - Vomiting [Unknown]
  - Non-cardiac chest pain [Unknown]
  - Malaise [Not Recovered/Not Resolved]
